FAERS Safety Report 6814631-2 (Version None)
Quarter: 2010Q3

REPORT INFORMATION
  Report Type: 
  Country: None (occurrence: None)
  Receive Date: 20100702
  Receipt Date: 20100624
  Transmission Date: 20110219
  Serious: Yes (Hospitalization, Other)
  Sender: FDA-Public Use
  Company Number: JP-PFIZER INC-2010064696

PATIENT
  Age: 67 Year
  Sex: Female
  Weight: 62 kg

DRUGS (6)
  1. GABAPEN [Suspect]
     Indication: FIBROMYALGIA
     Dosage: 300 MG, 2X/DAY
     Route: 048
     Dates: start: 20100226, end: 20100226
  2. GABAPEN [Interacting]
     Dosage: 400 MG, 3X/DAY
     Route: 048
     Dates: start: 20100227, end: 20100313
  3. TEGRETOL [Interacting]
     Indication: FIBROMYALGIA
     Dosage: 100 MG, 2X/DAY
     Route: 048
     Dates: start: 20100212, end: 20100323
  4. AMITRIPTYLINE HCL [Concomitant]
     Indication: FIBROMYALGIA
     Dosage: 25 MG, 2X/DAY
     Route: 048
     Dates: start: 20100212
  5. NEUROTROPIN [Concomitant]
     Indication: FIBROMYALGIA
     Dosage: TWICE DAILY, 8 UNITS/DAY
     Route: 048
     Dates: start: 20100212
  6. SHAKUYAKU-KANZO-TO [Concomitant]
     Indication: FIBROMYALGIA
     Dosage: 2.5 G, 3X/DAY
     Route: 048
     Dates: start: 20100212

REACTIONS (5)
  - DRUG INTERACTION [None]
  - DYSPHAGIA [None]
  - ORAL DISORDER [None]
  - PRURITUS [None]
  - RASH [None]
